APPROVED DRUG PRODUCT: GABAPENTIN
Active Ingredient: GABAPENTIN
Strength: 300MG
Dosage Form/Route: TABLET;ORAL
Application: A203934 | Product #001 | TE Code: AB2
Applicant: ZYDUS PHARMACEUTICALS USA INC
Approved: Jan 24, 2024 | RLD: No | RS: No | Type: RX